FAERS Safety Report 9665702 (Version 1)
Quarter: 2013Q4

REPORT INFORMATION
  Report Type: Report from Study
  Country: BR (occurrence: BR)
  Receive Date: 20131104
  Receipt Date: 20131104
  Transmission Date: 20140711
  Serious: Yes (Hospitalization, Other)
  Sender: FDA-Public Use
  Company Number: PHHY2013BR124093

PATIENT
  Sex: Female
  Weight: 45 kg

DRUGS (1)
  1. RITALINA [Suspect]
     Indication: ATTENTION DEFICIT/HYPERACTIVITY DISORDER
     Dosage: 1 DF, DAILY
     Route: 048
     Dates: start: 201007

REACTIONS (3)
  - Cough [Recovered/Resolved]
  - Diabetes mellitus [Recovered/Resolved]
  - Dizziness [Recovered/Resolved]
